FAERS Safety Report 7518664-2 (Version None)
Quarter: 2011Q2

REPORT INFORMATION
  Report Type: 
  Country: None (occurrence: None)
  Receive Date: 20110602
  Receipt Date: 20110518
  Transmission Date: 20111010
  Serious: Yes (Other)
  Sender: FDA-Public Use
  Company Number: PHHY2011CN31811

PATIENT
  Age: 65 Year
  Sex: Male

DRUGS (2)
  1. VALSARTAN [Suspect]
     Indication: HYPERTENSION
     Dosage: 80 MG, QD
     Route: 048
  2. NIMODIPINE [Suspect]
     Dosage: 30 MG, TID
     Route: 048

REACTIONS (11)
  - URTICARIA [None]
  - EYELID OEDEMA [None]
  - ANAPHYLACTIC REACTION [None]
  - ANGIOEDEMA [None]
  - SKIN DISCOLOURATION [None]
  - RASH [None]
  - DIZZINESS [None]
  - DERMATITIS ALLERGIC [None]
  - HEADACHE [None]
  - OEDEMA [None]
  - BLOOD PRESSURE INCREASED [None]
